FAERS Safety Report 8902111 (Version 2)
Quarter: 2012Q4

REPORT INFORMATION
  Report Type: 
  Country: CN (occurrence: CN)
  Receive Date: 20121112
  Receipt Date: 20121123
  Transmission Date: 20130627
  Serious: Yes (Hospitalization, Other)
  Sender: FDA-Public Use
  Company Number: CN-JNJFOC-20121100555

PATIENT
  Age: 45 None
  Sex: Male
  Weight: 61 kg

DRUGS (2)
  1. EXTRA STRENGTH TYLENOL [Suspect]
     Indication: PYREXIA
     Route: 048
     Dates: start: 20080815
  2. LEVOFLOXACIN [Suspect]
     Indication: PYREXIA
     Route: 042
     Dates: start: 20080816, end: 20080818

REACTIONS (4)
  - Liver function test abnormal [Unknown]
  - Incorrect dose administered [Unknown]
  - Rash generalised [Unknown]
  - White blood cell count increased [Unknown]
